FAERS Safety Report 13585894 (Version 3)
Quarter: 2017Q3

REPORT INFORMATION
  Report Type: Report from Study
  Country: PL (occurrence: PL)
  Receive Date: 20170526
  Receipt Date: 20170928
  Transmission Date: 20171127
  Serious: Yes (Death)
  Sender: FDA-Public Use
  Company Number: PL-PFIZER INC-2017231054

PATIENT
  Age: 58 Year
  Sex: Female
  Weight: 50.9 kg

DRUGS (8)
  1. TOFACITINIB CITRATE [Suspect]
     Active Substance: TOFACITINIB CITRATE
     Indication: RHEUMATOID ARTHRITIS
     Dosage: 10 MG, 2X/DAY
     Route: 048
     Dates: start: 20160627
  2. ACIDUM FOLICUM [Concomitant]
     Active Substance: FOLIC ACID
     Indication: DRUG TOXICITY PROPHYLAXIS
     Dosage: 15.0 MG, ONCE WEEKLY
     Route: 048
     Dates: start: 200006
  3. ENCORTON [Concomitant]
     Active Substance: PREDNISONE
     Indication: RHEUMATOID ARTHRITIS
     Dosage: 5.0 MG, DAILY
     Route: 048
     Dates: start: 2007
  4. ALPROX [Concomitant]
     Active Substance: ALPRAZOLAM
     Indication: NEUROSIS
     Dosage: 0.5 MG, DAILY
     Route: 048
     Dates: start: 2010
  5. METHOTREXATE. [Concomitant]
     Active Substance: METHOTREXATE
     Indication: RHEUMATOID ARTHRITIS
     Dosage: 20.0 MG, ONCE WEEKLY
     Route: 048
     Dates: start: 201404
  6. KETONAL FORTE [Concomitant]
     Active Substance: KETOPROFEN
     Indication: RHEUMATOID ARTHRITIS
     Dosage: 100.00 MG, DAILY
     Route: 048
     Dates: start: 200701
  7. HELICID [Concomitant]
     Active Substance: OMEPRAZOLE
     Indication: PROPHYLAXIS
     Dosage: 20.0 MG, DAILY
     Route: 048
     Dates: start: 2010
  8. ROSWERA [Concomitant]
     Active Substance: ROSUVASTATIN
     Indication: HYPERLIPIDAEMIA
     Dosage: 10.0 MG, DAILY
     Route: 048
     Dates: start: 201402

REACTIONS (1)
  - Death [Fatal]

NARRATIVE: CASE EVENT DATE: 20170311
